FAERS Safety Report 9961488 (Version 2)
Quarter: 2015Q2

REPORT INFORMATION
  Report Type: Report from Study
  Country: BR (occurrence: BR)
  Receive Date: 20140305
  Receipt Date: 20150625
  Transmission Date: 20150821
  Serious: Yes (Death, Hospitalization, Other)
  Sender: FDA-Public Use
  Company Number: PHHY2014BR025327

PATIENT
  Age: 76 Year
  Sex: Female
  Weight: 52 kg

DRUGS (4)
  1. EXELON PATCH [Suspect]
     Active Substance: RIVASTIGMINE
     Indication: DEMENTIA ALZHEIMER^S TYPE
     Dosage: PATCH 5 (CM2 )
     Route: 062
  2. CEFIXIME. [Concomitant]
     Active Substance: CEFIXIME
     Indication: DEMENTIA ALZHEIMER^S TYPE
     Dosage: 1 DF, QD
     Route: 065
     Dates: start: 201301, end: 201303
  3. METFORMIN [Concomitant]
     Active Substance: METFORMIN HYDROCHLORIDE
     Indication: DIABETES MELLITUS
     Dosage: 1 DF, TID
     Route: 065
     Dates: start: 201303
  4. CARDIZEM [Concomitant]
     Active Substance: DILTIAZEM HYDROCHLORIDE
     Indication: BLOOD PRESSURE INCREASED
     Dosage: 1 DF, QD
     Route: 065
     Dates: start: 201303

REACTIONS (4)
  - Seizure [Fatal]
  - Metastases to central nervous system [Fatal]
  - Grip strength decreased [Fatal]
  - Lung neoplasm malignant [Fatal]

NARRATIVE: CASE EVENT DATE: 20140217
